FAERS Safety Report 6292411-7 (Version None)
Quarter: 2009Q3

REPORT INFORMATION
  Report Type: 
  Country: None (occurrence: None)
  Receive Date: 20090731
  Receipt Date: 20090730
  Transmission Date: 20100115
  Serious: Yes (Death, Other)
  Sender: FDA-Public Use
  Company Number: PHEH2009US08439

PATIENT
  Sex: Male

DRUGS (6)
  1. EXJADE [Suspect]
     Indication: IRON OVERLOAD
     Dosage: 1000 MG, QD
     Route: 048
     Dates: start: 20060526
  2. EXJADE [Suspect]
     Indication: MYELODYSPLASTIC SYNDROME
  3. LASIX [Concomitant]
     Indication: OEDEMA
     Dosage: 20 MG, QD
     Dates: start: 20060524
  4. K-DUR [Concomitant]
     Indication: ELECTROLYTE SUBSTITUTION THERAPY
     Dosage: 10 MEQ, QD
     Dates: start: 20060824
  5. LUNESTA [Concomitant]
     Indication: INSOMNIA
  6. COMPAZINE [Concomitant]
     Indication: NAUSEA
     Dosage: 10 MG, PRN

REACTIONS (4)
  - BLOOD ALKALINE PHOSPHATASE INCREASED [None]
  - DEATH [None]
  - DYSPNOEA [None]
  - FATIGUE [None]
